FAERS Safety Report 15330438 (Version 1)
Quarter: 2018Q3

REPORT INFORMATION
  Report Type: Spontaneous
  Country: US (occurrence: US)
  Receive Date: 20180824
  Receipt Date: 20180824
  Transmission Date: 20181010
  Serious: Yes (Life-Threatening, Hospitalization, Disabling)
  Sender: FDA-Public Use
  Company Number: None

PATIENT
  Age: 60 Year
  Sex: Male
  Weight: 76.2 kg

DRUGS (1)
  1. LEDIFOS?LEDIPASVIR 90MG?SOFOSBUVIR 400MG TABLETS [Suspect]
     Active Substance: LEDIPASVIR\SOFOSBUVIR
     Indication: ACUTE HEPATITIS C
     Dosage: ?          QUANTITY:1 DF DOSAGE FORM;?
     Route: 048
     Dates: start: 20180613, end: 20180803

REACTIONS (7)
  - Disorganised speech [None]
  - Wrong drug administered [None]
  - Moaning [None]
  - Hallucination [None]
  - Psychotic disorder [None]
  - Drug dispensing error [None]
  - Aggression [None]

NARRATIVE: CASE EVENT DATE: 20180723
